FAERS Safety Report 4412832-4 (Version None)
Quarter: 2004Q3

REPORT INFORMATION
  Report Type: 
  Country: None (occurrence: None)
  Receive Date: 20040730
  Receipt Date: 20040730
  Transmission Date: 20050211
  Serious: Yes (Other)
  Sender: FDA-Public Use
  Company Number: None

PATIENT
  Age: 47 Year
  Sex: Female
  Weight: 58.9676 kg

DRUGS (2)
  1. VAGIFEM [Suspect]
     Indication: VAGINAL PAIN
     Dosage: 1 DAY VAGINAL
     Route: 067
     Dates: start: 20040716, end: 20040728
  2. VAGIFEM [Suspect]
     Dosage: 1 TWICE A WEEK VAGINAL
     Route: 067

REACTIONS (2)
  - HERPES SIMPLEX [None]
  - HORMONE LEVEL ABNORMAL [None]
